FAERS Safety Report 8356091-9 (Version None)
Quarter: 2012Q2

REPORT INFORMATION
  Report Type: 
  Country: None (occurrence: None)
  Receive Date: 20120510
  Receipt Date: 20120501
  Transmission Date: 20120825
  Serious: Yes (Hospitalization)
  Sender: FDA-Public Use
  Company Number: 133506

PATIENT
  Age: 75 Year
  Sex: Male
  Weight: 67.586 kg

DRUGS (5)
  1. ADRIAMYCIN PFS [Suspect]
     Indication: CHRONIC LYMPHOCYTIC LEUKAEMIA
     Dosage: 50MG/M2 IV EVERY 21 DAYS
     Route: 042
     Dates: start: 20110919, end: 20111121
  2. CYCLOPHOSPHAMIDE [Concomitant]
  3. RITUXIMAB [Concomitant]
  4. PREDNISONE TAB [Concomitant]
  5. VINCRISTINE SULFATE [Concomitant]

REACTIONS (1)
  - DEEP VEIN THROMBOSIS [None]
